FAERS Safety Report 24867861 (Version 6)
Quarter: 2025Q4

REPORT INFORMATION
  Report Type: Spontaneous
  Country: US (occurrence: US)
  Receive Date: 20250121
  Receipt Date: 20251127
  Transmission Date: 20260118
  Serious: Yes (Other)
  Sender: BRISTOL-MYERS SQUIBB COMPANY
  Company Number: US-BRISTOL-MYERS SQUIBB COMPANY-2025-008555

PATIENT
  Age: 64 Year
  Sex: Female

DRUGS (2)
  1. THALOMID [Suspect]
     Active Substance: THALIDOMIDE
     Indication: Systemic scleroderma
     Dosage: DAILY
     Route: 048
  2. THALOMID [Suspect]
     Active Substance: THALIDOMIDE
     Route: 048

REACTIONS (13)
  - Skin disorder [Recovering/Resolving]
  - Eye infection [Recovering/Resolving]
  - Rash [Recovering/Resolving]
  - Blood chloride increased [Unknown]
  - Arthritis [Unknown]
  - Off label use [Unknown]
  - Pain in extremity [Unknown]
  - Pain [Unknown]
  - Product dose omission issue [Unknown]
  - Balance disorder [Unknown]
  - Mass [Unknown]
  - Neuropathy peripheral [Unknown]
  - Retinal disorder [Unknown]
